FAERS Safety Report 8138032 (Version 2)
Quarter: 2012Q4

REPORT INFORMATION
  Report Type: Report from Study
  Country: DE (occurrence: DE)
  Receive Date: 20110915
  Receipt Date: 20120925
  Transmission Date: 20130627
  Serious: Yes (Hospitalization)
  Sender: FDA-Public Use
  Company Number: DE-CELGENEUS-062-50794-11090457

PATIENT
  Age: 56 Year
  Sex: Female
  Weight: 93 kg

DRUGS (13)
  1. VIDAZA [Suspect]
     Indication: ACUTE MYELOID LEUKEMIA
     Dosage: 202 Milligram
     Route: 065
     Dates: start: 20110802, end: 20110806
  2. IDARUBICIN [Suspect]
     Indication: ACUTE MYELOID LEUKEMIA
     Dosage: 24.24 Milligram
     Route: 065
     Dates: start: 20110802, end: 20110802
  3. IDARUBICIN [Suspect]
     Dosage: 24.24 Milligram
     Route: 065
     Dates: start: 20110804, end: 20110804
  4. IDARUBICIN [Suspect]
     Dosage: 24.24 Milligram
     Route: 065
     Dates: start: 20110806, end: 20110806
  5. ETOPOSID [Suspect]
     Indication: ACUTE MYELOID LEUKEMIA
     Dosage: 202 Milligram
     Route: 065
     Dates: start: 20110802, end: 20110804
  6. LISINOPRIL [Concomitant]
     Indication: HYPERTENSION
     Dosage: 10 Milligram
     Route: 048
     Dates: start: 20110802
  7. HEPSERA [Concomitant]
     Indication: HEPATITIS B
     Dosage: 10 Milligram
     Route: 048
     Dates: start: 20110802
  8. PANTOZOL [Concomitant]
     Indication: PROPHYLAXIS
     Dosage: 40 Milligram
     Route: 048
     Dates: start: 20110802
  9. COTRIM FORTE [Concomitant]
     Indication: PROPHYLAXIS
     Dosage: 1600/300mg
     Route: 048
     Dates: start: 20110802
  10. FOLSAN [Concomitant]
     Indication: PROPHYLAXIS
     Route: 048
     Dates: start: 20110802
  11. DEXAMETHASONE [Concomitant]
     Indication: NAUSEA
     Dosage: previously more
     Route: 048
     Dates: start: 20110812
  12. NOXAFIL [Concomitant]
     Indication: PROPHYLAXIS
     Dosage: 600 Milligram
     Route: 048
     Dates: start: 20110807, end: 20110829
  13. ESIDRIX [Concomitant]
     Indication: HYPERTENSION
     Dosage: 12.5 Milligram
     Route: 048
     Dates: start: 20110802

REACTIONS (1)
  - Neutropenic colitis [Not Recovered/Not Resolved]
